FAERS Safety Report 16377850 (Version 2)
Quarter: 2019Q2

REPORT INFORMATION
  Report Type: Report from Study
  Country: RU (occurrence: RU)
  Receive Date: 20190531
  Receipt Date: 20190613
  Transmission Date: 20190711
  Serious: Yes (Other)
  Sender: FDA-Public Use
  Company Number: RU-AMGEN-RUSCT2019083833

PATIENT
  Age: 55 Year
  Sex: Female

DRUGS (12)
  1. CARDIOMAGNYL [Concomitant]
     Active Substance: ASPIRIN\MAGNESIUM HYDROXIDE
     Dosage: UNK
     Dates: start: 20170101, end: 20180418
  2. ALFACALCIDOL [Concomitant]
     Active Substance: ALFACALCIDOL
     Dosage: UNK
     Dates: start: 20180327
  3. EPREX [Concomitant]
     Active Substance: ERYTHROPOIETIN
     Dosage: UNK
     Dates: start: 20180411
  4. DARBEPOETIN ALFA [Suspect]
     Active Substance: DARBEPOETIN ALFA
     Indication: ANAEMIA
     Dosage: 40 MICROGRAM, QWK
     Route: 058
     Dates: start: 20171229, end: 20180104
  5. SEVELAMER [Concomitant]
     Active Substance: SEVELAMER
     Dosage: UNK
     Dates: start: 20170101
  6. METOPROLOL. [Concomitant]
     Active Substance: METOPROLOL
     Dosage: UNK
     Dates: start: 20170101
  7. CALCIUM CARBONATE W/COLECALCIFEROL [Concomitant]
     Active Substance: CALCIUM CARBONATE\CHOLECALCIFEROL
     Dosage: UNK
     Dates: start: 20180327
  8. DARBEPOETIN ALFA [Suspect]
     Active Substance: DARBEPOETIN ALFA
     Dosage: 40 MICROGRAM, QWK
     Route: 058
     Dates: start: 20180117, end: 20180123
  9. DARBEPOETIN ALFA [Suspect]
     Active Substance: DARBEPOETIN ALFA
     Dosage: 30 MICROGRAM, QWK
     Route: 058
     Dates: start: 20180124, end: 20180417
  10. CINACALCET HCL [Concomitant]
     Active Substance: CINACALCET HYDROCHLORIDE
     Dosage: UNK
     Dates: start: 2012, end: 20180326
  11. PARICALCITOL. [Concomitant]
     Active Substance: PARICALCITOL
     Dosage: UNK
     Dates: start: 2016, end: 20180326
  12. DARBEPOETIN ALFA [Suspect]
     Active Substance: DARBEPOETIN ALFA
     Dosage: 50 MICROGRAM, QWK
     Route: 058
     Dates: start: 20180105, end: 20180116

REACTIONS (1)
  - Dermatitis exfoliative [Recovered/Resolved]

NARRATIVE: CASE EVENT DATE: 20180411
